FAERS Safety Report 21462353 (Version 3)
Quarter: 2022Q4

REPORT INFORMATION
  Report Type: Report from Study
  Country: US (occurrence: None)
  Receive Date: 20221016
  Receipt Date: 20221110
  Transmission Date: 20230113
  Serious: Yes (Other)
  Sender: FDA-Public Use
  Company Number: US-ROCHE-3199654

PATIENT
  Age: 63 Year
  Sex: Female
  Weight: 82.2 kg

DRUGS (11)
  1. ATEZOLIZUMAB [Suspect]
     Active Substance: ATEZOLIZUMAB
     Indication: Endometrial cancer
     Route: 041
     Dates: start: 20210210, end: 20211012
  2. ATEZOLIZUMAB [Suspect]
     Active Substance: ATEZOLIZUMAB
     Route: 041
     Dates: start: 20220921
  3. BEVACIZUMAB [Suspect]
     Active Substance: BEVACIZUMAB
     Indication: Endometrial cancer
     Route: 042
     Dates: start: 20210210, end: 20210831
  4. BEVACIZUMAB [Suspect]
     Active Substance: BEVACIZUMAB
     Route: 042
     Dates: start: 20220831
  5. AMLODIPINE [Concomitant]
     Active Substance: AMLODIPINE BESYLATE
     Dates: start: 20211020
  6. BACILLUS COAGULANS;INULIN [Concomitant]
     Dates: start: 20200129
  7. BUSPIRONE [Concomitant]
     Active Substance: BUSPIRONE HYDROCHLORIDE
     Dates: start: 20211020
  8. CLONIDINE [Concomitant]
     Active Substance: CLONIDINE
     Dates: start: 202112
  9. DIPHENHYDRAMINE [Concomitant]
     Active Substance: DIPHENHYDRAMINE
     Dates: start: 20201211
  10. TRIAMCINOLONE [Concomitant]
     Active Substance: TRIAMCINOLONE
     Indication: Dermatitis
     Route: 061
     Dates: start: 20210125
  11. PREDNISONE [Concomitant]
     Active Substance: PREDNISONE

REACTIONS (2)
  - Proteinuria [Unknown]
  - Proteinuria [Unknown]

NARRATIVE: CASE EVENT DATE: 20220920
